FAERS Safety Report 8821872 (Version 2)
Quarter: 2012Q4

REPORT INFORMATION
  Report Type: 
  Country: GB (occurrence: GB)
  Receive Date: 20121002
  Receipt Date: 20121011
  Transmission Date: 20130627
  Serious: Yes (Death, Other)
  Sender: FDA-Public Use
  Company Number: GB-PFIZER INC-2012239869

PATIENT
  Age: 72 Year
  Sex: Male
  Weight: 91 kg

DRUGS (10)
  1. ATORVASTATIN [Suspect]
     Indication: MYOCARDIAL ISCHAEMIA
     Dosage: 80 mg, UNK
     Route: 048
     Dates: start: 20080311
  2. FUSIDIC ACID [Suspect]
     Indication: OSTEOMYELITIS
     Dosage: 250 mg, 2x/day
     Dates: start: 20120731, end: 20120806
  3. CLARITHROMYCIN [Suspect]
     Indication: OSTEOMYELITIS
     Dosage: 250 mg, 2x/day
     Dates: start: 20120731, end: 20120806
  4. AMIODARONE [Concomitant]
     Indication: ARRHYTHMIA
     Dosage: 100 mg, UNK
     Route: 048
     Dates: start: 20101003
  5. ACETYLSALICYLIC ACID [Concomitant]
     Indication: MYOCARDIAL ISCHAEMIA
     Dosage: 75 mg, UNK
     Route: 048
     Dates: start: 2005
  6. BISOPROLOL [Concomitant]
     Indication: MYOCARDIAL ISCHAEMIA
     Dosage: 10 mg, UNK
     Route: 048
     Dates: start: 2007
  7. FUROSEMIDE [Concomitant]
     Indication: CARDIAC FAILURE CONGESTIVE
     Dosage: 40 mg, UNK
     Route: 048
     Dates: start: 2008
  8. THYROXINE [Concomitant]
     Indication: HYPOTHYROIDISM
     Dosage: 50 ug, UNK
     Route: 048
     Dates: start: 20111212
  9. METFORMIN [Concomitant]
     Indication: DIABETES MELLITUS
     Dosage: 500 mg, 3x/day
     Route: 048
     Dates: start: 2005
  10. PERINDOPRIL [Concomitant]
     Indication: MYOCARDIAL ISCHAEMIA
     Dosage: 4 mg, UNK
     Route: 048
     Dates: start: 2005

REACTIONS (4)
  - Death [Fatal]
  - Syncope [Not Recovered/Not Resolved]
  - Vomiting [Not Recovered/Not Resolved]
  - Diarrhoea [Not Recovered/Not Resolved]
